FAERS Safety Report 8139790-3 (Version None)
Quarter: 2012Q1

REPORT INFORMATION
  Report Type: 
  Country: None (occurrence: None)
  Receive Date: 20120215
  Receipt Date: 20120208
  Transmission Date: 20120608
  Serious: Yes (Hospitalization, Other)
  Sender: FDA-Public Use
  Company Number: US-US-EMD SERONO, INC.-7089660

PATIENT
  Sex: Female

DRUGS (2)
  1. REBIF [Suspect]
     Indication: MULTIPLE SCLEROSIS
     Dates: end: 20110401
  2. REBIF [Suspect]
     Route: 058
     Dates: start: 20111008

REACTIONS (4)
  - INFLUENZA LIKE ILLNESS [None]
  - MENISCUS LESION [None]
  - KNEE OPERATION [None]
  - MULTIPLE SCLEROSIS RELAPSE [None]
